FAERS Safety Report 9407087 (Version 1)
Quarter: 2013Q3

REPORT INFORMATION
  Report Type: Spontaneous
  Country: US (occurrence: US)
  Receive Date: 20130718
  Receipt Date: 20130718
  Transmission Date: 20140515
  Serious: Yes (Death)
  Sender: FDA-Public Use
  Company Number: US-PFIZER INC-2013203760

PATIENT
  Age: 58 Year
  Sex: Female

DRUGS (6)
  1. FLUOXETINE HCL [Suspect]
     Dosage: UNK
  2. HYDROXYZINE PAMOATE [Suspect]
     Dosage: 13 (50 MG) TABLETS WERE TAKEN OVER 3 DAYS
  3. VENLAFAXINE HCL [Suspect]
     Dosage: UNK
  4. PROPOXYPHENE [Suspect]
     Dosage: UNK
  5. ACETAMINOPHEN [Concomitant]
     Dosage: UNK
  6. CLONAZEPAM [Concomitant]
     Dosage: UNK

REACTIONS (3)
  - Toxicity to various agents [Fatal]
  - Pneumonia aspiration [Fatal]
  - Completed suicide [Fatal]
